FAERS Safety Report 13104045 (Version 1)
Quarter: 2017Q1

REPORT INFORMATION
  Report Type: Report from Study
  Country: US (occurrence: US)
  Receive Date: 20170111
  Receipt Date: 20170111
  Transmission Date: 20170428
  Serious: Yes (Hospitalization)
  Sender: FDA-Public Use
  Company Number: US-TAKEDA-2015MPI005553

PATIENT
  Age: 73 Year
  Sex: Female
  Weight: 96 kg

DRUGS (34)
  1. VELCADE [Suspect]
     Active Substance: BORTEZOMIB
     Dosage: 2.8 UNK, UNK
     Route: 058
     Dates: start: 20150806, end: 20150806
  2. ONDANSETRON [Concomitant]
     Active Substance: ONDANSETRON
     Indication: PROPHYLAXIS OF NAUSEA AND VOMITING
     Dosage: 8 MG, UNK
     Route: 048
     Dates: start: 20150730
  3. VELCADE [Suspect]
     Active Substance: BORTEZOMIB
     Dosage: 2.8 MG, UNK
     Route: 058
     Dates: start: 20150811, end: 20150811
  4. ATORVASTATIN [Concomitant]
     Active Substance: ATORVASTATIN
     Dosage: UNK
  5. CARNATION BREAKFAST ESSENTIALS [Concomitant]
     Indication: WEIGHT DECREASED
     Dosage: UNK
     Route: 048
     Dates: start: 20150807
  6. VELCADE [Suspect]
     Active Substance: BORTEZOMIB
     Dosage: 2.1 MG, UNK
     Route: 058
     Dates: start: 20150917, end: 20150917
  7. VELCADE [Suspect]
     Active Substance: BORTEZOMIB
     Dosage: 2.15 MG, UNK
     Route: 058
     Dates: start: 20151029, end: 20151029
  8. VELCADE [Suspect]
     Active Substance: BORTEZOMIB
     Dosage: 2.8 MG, UNK
     Route: 058
     Dates: start: 20150828, end: 20150828
  9. MELPHALAN [Suspect]
     Active Substance: MELPHALAN
     Indication: PLASMA CELL MYELOMA
     Dosage: 20 MG, QD
     Route: 048
     Dates: start: 20150730
  10. ALLOPURINOL. [Concomitant]
     Active Substance: ALLOPURINOL
     Dosage: 200 MG, QD
     Route: 048
     Dates: start: 20150730
  11. WARFARIN [Concomitant]
     Active Substance: WARFARIN
     Indication: CARDIAC VALVE PROSTHESIS USER
     Dosage: UNK
  12. NORMAL SALINE [Concomitant]
     Active Substance: SODIUM CHLORIDE
     Indication: CLOSTRIDIUM DIFFICILE INFECTION
     Dosage: UNK
     Route: 042
     Dates: start: 20150807
  13. VELCADE [Suspect]
     Active Substance: BORTEZOMIB
     Dosage: 2.15 MG, UNK
     Route: 058
     Dates: start: 20151119, end: 20151119
  14. VELCADE [Suspect]
     Active Substance: BORTEZOMIB
     Dosage: 2.8 MG, UNK
     Route: 058
     Dates: start: 20150825, end: 20150825
  15. ALLOPURINOL. [Concomitant]
     Active Substance: ALLOPURINOL
     Indication: PROPHYLAXIS
     Dosage: 300 MG, BID
     Route: 048
  16. FELODIPINE. [Concomitant]
     Active Substance: FELODIPINE
     Dosage: UNK
  17. FILGRASTIM [Concomitant]
     Active Substance: FILGRASTIM
     Indication: WHITE BLOOD CELL COUNT DECREASED
     Dosage: 480 MG, QD
     Route: 058
     Dates: start: 20150814, end: 20150815
  18. VELCADE [Suspect]
     Active Substance: BORTEZOMIB
     Dosage: 2.1 MG, UNK
     Route: 058
     Dates: start: 20151001, end: 20151001
  19. VELCADE [Suspect]
     Active Substance: BORTEZOMIB
     Dosage: 2.15 MG, UNK
     Route: 058
     Dates: start: 20151112, end: 20151112
  20. PREDNISONE. [Suspect]
     Active Substance: PREDNISONE
     Indication: PLASMA CELL MYELOMA
     Dosage: 120 MG, QD
     Route: 048
     Dates: start: 20150730
  21. VELCADE [Suspect]
     Active Substance: BORTEZOMIB
     Indication: PLASMA CELL MYELOMA
     Dosage: 2.8 MG, UNK
     Route: 058
     Dates: start: 20150730
  22. VELCADE [Suspect]
     Active Substance: BORTEZOMIB
     Dosage: 2.8 MG, UNK
     Route: 058
     Dates: start: 20150831, end: 20150831
  23. DARATUMUMAB [Suspect]
     Active Substance: DARATUMUMAB
     Indication: PLASMA CELL MYELOMA
     Dosage: UNK
     Route: 042
  24. NEURONTIN [Concomitant]
     Active Substance: GABAPENTIN
     Dosage: 300 MG, BID
     Route: 048
  25. ZYRTEC [Concomitant]
     Active Substance: CETIRIZINE HYDROCHLORIDE
     Indication: RHINORRHOEA
     Dosage: 10 MG, UNK
     Route: 048
  26. METOPROLOL. [Concomitant]
     Active Substance: METOPROLOL
     Dosage: UNK
  27. VELCADE [Suspect]
     Active Substance: BORTEZOMIB
     Dosage: 2.1 MG, UNK
     Route: 058
     Dates: start: 20150910, end: 20150910
  28. VELCADE [Suspect]
     Active Substance: BORTEZOMIB
     Dosage: 2.1 MG, UNK
     Route: 058
     Dates: start: 20151008, end: 20151008
  29. VELCADE [Suspect]
     Active Substance: BORTEZOMIB
     Dosage: 2.8 MG, UNK
     Route: 058
     Dates: start: 20150821, end: 20150821
  30. POTASSIUM CHLORIDE. [Concomitant]
     Active Substance: POTASSIUM CHLORIDE
     Indication: HYPOKALAEMIA
     Dosage: UNK
     Route: 048
     Dates: start: 20150807, end: 20150809
  31. VELCADE [Suspect]
     Active Substance: BORTEZOMIB
     Dosage: 2.8 MG, UNK
     Route: 058
     Dates: start: 20150802, end: 20150802
  32. VELCADE [Suspect]
     Active Substance: BORTEZOMIB
     Dosage: 2.15 MG, UNK
     Route: 058
     Dates: start: 20151022, end: 20151022
  33. VANCOMYCIN [Concomitant]
     Active Substance: VANCOMYCIN
     Indication: CLOSTRIDIUM DIFFICILE INFECTION
     Dosage: UNK
     Dates: end: 20150725
  34. VANCOMYCIN [Concomitant]
     Active Substance: VANCOMYCIN
     Indication: INFECTION

REACTIONS (3)
  - Febrile neutropenia [Recovered/Resolved]
  - Diarrhoea [Recovered/Resolved]
  - Clostridium difficile infection [Recovered/Resolved]

NARRATIVE: CASE EVENT DATE: 20150807
